FAERS Safety Report 5484779-6 (Version None)
Quarter: 2007Q4

REPORT INFORMATION
  Report Type: 
  Country: None (occurrence: None)
  Receive Date: 20071012
  Receipt Date: 20071001
  Transmission Date: 20080405
  Serious: Yes (Other)
  Sender: FDA-Public Use
  Company Number: US-PFIZER INC-2007082933

PATIENT
  Sex: Female
  Weight: 109.1 kg

DRUGS (2)
  1. CHANTIX [Suspect]
     Indication: SMOKING CESSATION THERAPY
  2. LEXAPRO [Concomitant]
     Indication: ANXIETY

REACTIONS (11)
  - ASTHENIA [None]
  - CHROMATOPSIA [None]
  - COLD SWEAT [None]
  - DIZZINESS [None]
  - DYSPNOEA [None]
  - FEELING ABNORMAL [None]
  - HYPERHIDROSIS [None]
  - HYPOAESTHESIA [None]
  - SOMNOLENCE [None]
  - TREMOR [None]
  - VISION BLURRED [None]
